FAERS Safety Report 8516446-6 (Version None)
Quarter: 2012Q3

REPORT INFORMATION
  Report Type: 
  Country: None (occurrence: None)
  Receive Date: 20120718
  Receipt Date: 20120716
  Transmission Date: 20120928
  Serious: No
  Sender: FDA-Public Use
  Company Number: US-PFIZER INC-2012171148

PATIENT
  Sex: Male
  Weight: 102 kg

DRUGS (6)
  1. GLUCOPHAGE [Concomitant]
     Indication: DIABETES MELLITUS
     Dosage: 500 MG, 2X/DAY
  2. WARFARIN SODIUM [Concomitant]
     Indication: ATRIAL FIBRILLATION
     Dosage: 10 MG, DAILY
  3. CELEBREX [Suspect]
     Indication: RHEUMATOID ARTHRITIS
     Dosage: 200 MG, DAILY
     Dates: start: 20090101, end: 20120701
  4. SIMVASTATIN [Concomitant]
     Indication: BLOOD CHOLESTEROL ABNORMAL
     Dosage: 20 MG, DAILY
  5. FUROSEMIDE [Concomitant]
     Indication: FLUID RETENTION
     Dosage: 40 MG, 2X/DAY
  6. CELEBREX [Suspect]
     Indication: OSTEOARTHRITIS

REACTIONS (2)
  - PAIN [None]
  - ARTHROPATHY [None]
